FAERS Safety Report 12434537 (Version 3)
Quarter: 2017Q3

REPORT INFORMATION
  Report Type: Spontaneous
  Country: GB (occurrence: GB)
  Receive Date: 20160603
  Receipt Date: 20170703
  Transmission Date: 20171127
  Serious: Yes (Death, Life-Threatening, Hospitalization)
  Sender: FDA-Public Use
  Company Number: GB-MYLANLABS-2016M1023155

PATIENT

DRUGS (4)
  1. DIAZEPAM. [Suspect]
     Active Substance: DIAZEPAM
     Dosage: UNK
  2. LYRICA [Suspect]
     Active Substance: PREGABALIN
     Dosage: UNK
  3. PHENAZEPAM [Suspect]
     Active Substance: PHENAZEPAM
     Dosage: UNK
  4. TRAMADOL. [Suspect]
     Active Substance: TRAMADOL
     Dosage: UNK

REACTIONS (5)
  - Prescription drug used without a prescription [Fatal]
  - Coma [Unknown]
  - Accidental overdose [Fatal]
  - Substance use [Fatal]
  - Myocardial infarction [Unknown]
